FAERS Safety Report 9023907 (Version 2)
Quarter: 2013Q1

REPORT INFORMATION
  Report Type: Spontaneous
  Country: US (occurrence: US)
  Receive Date: 20130121
  Receipt Date: 20130215
  Transmission Date: 20140127
  Serious: No
  Sender: FDA-Public Use
  Company Number: US-PFIZER INC-2013020770

PATIENT
  Age: 5 Year
  Sex: Male

DRUGS (3)
  1. RAPAMUNE [Suspect]
     Indication: RENAL TRANSPLANT
     Dosage: 1 MG, 2X/DAY (Q 12 HRS)
     Route: 048
     Dates: start: 201006
  2. CELLCEPT [Concomitant]
     Indication: IMMUNOSUPPRESSION
     Dosage: 50 MG, 2X/DAY
     Dates: start: 200912, end: 20121015
  3. PREDNISONE [Concomitant]
     Dosage: 2.1 MG, 1X/DAY
     Dates: start: 200912

REACTIONS (1)
  - Drug level increased [Recovered/Resolved]
